FAERS Safety Report 7503265-2 (Version None)
Quarter: 2011Q2

REPORT INFORMATION
  Report Type: 
  Country: None (occurrence: None)
  Receive Date: 20110524
  Receipt Date: 20110524
  Transmission Date: 20111010
  Serious: Yes (Other)
  Sender: FDA-Public Use
  Company Number: None

PATIENT
  Age: 38 Year
  Sex: Female
  Weight: 68 kg

DRUGS (2)
  1. PROPRANOLOL [Suspect]
     Dosage: 80MG TWICE A DAY
  2. SIMVASTATIN [Suspect]
     Dosage: 80 MG ONE TABLET A DAY

REACTIONS (2)
  - AMNESIA [None]
  - ROAD TRAFFIC ACCIDENT [None]
